FAERS Safety Report 11758222 (Version 1)
Quarter: 2015Q4

REPORT INFORMATION
  Report Type: Spontaneous
  Country: RO (occurrence: RO)
  Receive Date: 20151120
  Receipt Date: 20151120
  Transmission Date: 20160304
  Serious: Yes (Other)
  Sender: FDA-Public Use
  Company Number: RO-BAYER-2015-465989

PATIENT
  Age: 72 Year
  Sex: Male

DRUGS (6)
  1. ACENOCUMAROL [Interacting]
     Active Substance: ACENOCOUMAROL
     Indication: CARDIAC ANEURYSM
  2. PRASUGREL [Interacting]
     Active Substance: PRASUGREL
     Indication: INTRACARDIAC THROMBUS
  3. ACETYLSALICYLIC ACID (} 100 MG) [Interacting]
     Active Substance: ASPIRIN
     Indication: INTRACARDIAC THROMBUS
  4. ACENOCUMAROL [Interacting]
     Active Substance: ACENOCOUMAROL
     Indication: INTRACARDIAC THROMBUS
  5. ACETYLSALICYLIC ACID (} 100 MG) [Suspect]
     Active Substance: ASPIRIN
     Indication: CARDIAC ANEURYSM
  6. PRASUGREL [Interacting]
     Active Substance: PRASUGREL
     Indication: CARDIAC ANEURYSM

REACTIONS (6)
  - Embolic stroke [Recovered/Resolved]
  - Gastrointestinal haemorrhage [Recovered/Resolved]
  - Ischaemic stroke [Recovered/Resolved]
  - Labelled drug-drug interaction medication error [None]
  - Cardiac pseudoaneurysm [Recovered/Resolved]
  - Intracardiac thrombus [Recovered/Resolved]
